FAERS Safety Report 18178781 (Version 2)
Quarter: 2021Q2

REPORT INFORMATION
  Report Type: Spontaneous
  Country: None (occurrence: US)
  Receive Date: 20200821
  Receipt Date: 20210524
  Transmission Date: 20210717
  Serious: Yes (Other)
  Sender: FDA-Public Use
  Company Number: US-GLAXOSMITHKLINE-US2020166014

PATIENT
  Sex: Male

DRUGS (3)
  1. RANITIDINE. [Suspect]
     Active Substance: RANITIDINE
     Dates: start: 20171215, end: 20191115
  2. RANITIDINE. [Suspect]
     Active Substance: RANITIDINE
     Indication: HYPERCHLORHYDRIA
     Dosage: 300 MG
     Route: 065
     Dates: start: 201701, end: 201911
  3. RANITIDINE. [Suspect]
     Active Substance: RANITIDINE
     Indication: HYPERCHLORHYDRIA
     Dosage: 300 MG
     Route: 065
     Dates: start: 201701, end: 201911

REACTIONS (1)
  - Hepatic cancer [Unknown]
